FAERS Safety Report 5320553-9 (Version None)
Quarter: 2007Q2

REPORT INFORMATION
  Report Type: 
  Country: None (occurrence: None)
  Receive Date: 20070509
  Receipt Date: 20070427
  Transmission Date: 20071010
  Serious: Yes (Other)
  Sender: FDA-Public Use
  Company Number: FR-PFIZER INC-2007034467

PATIENT
  Sex: Female

DRUGS (1)
  1. CHAMPIX [Suspect]
     Indication: SMOKING CESSATION THERAPY
     Dosage: DAILY DOSE:1MG

REACTIONS (5)
  - COORDINATION ABNORMAL [None]
  - FLATULENCE [None]
  - HEARING IMPAIRED [None]
  - NIGHTMARE [None]
  - VERTIGO [None]
